FAERS Safety Report 21484499 (Version 1)
Quarter: 2022Q4

REPORT INFORMATION
  Report Type: Report from Study
  Country: US (occurrence: US)
  Receive Date: 20221020
  Receipt Date: 20221020
  Transmission Date: 20230112
  Serious: No
  Sender: FDA-Public Use
  Company Number: US-ABBVIE-4140407

PATIENT
  Sex: Male

DRUGS (1)
  1. IMBRUVICA [Suspect]
     Active Substance: IBRUTINIB
     Indication: Chronic lymphocytic leukaemia
     Route: 048
     Dates: start: 20180425

REACTIONS (6)
  - Rash macular [Unknown]
  - Peripheral swelling [Unknown]
  - Nausea [Unknown]
  - Tremor [Unknown]
  - Muscle spasms [Unknown]
  - Back injury [Unknown]
